FAERS Safety Report 9929374 (Version 3)
Quarter: 2014Q2

REPORT INFORMATION
  Report Type: Report from Study
  Country: CZ (occurrence: CZ)
  Receive Date: 20140227
  Receipt Date: 20140403
  Transmission Date: 20141212
  Serious: Yes (Other)
  Sender: FDA-Public Use
  Company Number: CZ-ABBVIE-14P-217-1203792-00

PATIENT
  Age: 8 Year
  Sex: Male
  Weight: 25 kg

DRUGS (8)
  1. HUMIRA [Suspect]
     Indication: JUVENILE IDIOPATHIC ARTHRITIS
     Route: 058
     Dates: start: 20120105
  2. METHOTREXATE [Concomitant]
     Indication: JUVENILE IDIOPATHIC ARTHRITIS
     Route: 048
     Dates: start: 20101026
  3. METHYLPREDNISOLONE [Concomitant]
     Indication: JUVENILE IDIOPATHIC ARTHRITIS
  4. ACIDUM FOLICUM [Concomitant]
     Indication: PROPHYLAXIS
     Dates: start: 20101027
  5. ACIDUM FOLICUM [Concomitant]
     Indication: ADVERSE DRUG REACTION
  6. KALIUM CHLORATUM [Concomitant]
     Indication: PROPHYLAXIS
     Dates: start: 20101125
  7. KALIUM CHLORATUM [Concomitant]
     Indication: ADVERSE DRUG REACTION
  8. METHYLPREDNISOLONE [Concomitant]
     Indication: JUVENILE IDIOPATHIC ARTHRITIS
     Dates: start: 20120420

REACTIONS (1)
  - Epilepsy [Not Recovered/Not Resolved]
